FAERS Safety Report 5579464-6 (Version None)
Quarter: 2007Q4

REPORT INFORMATION
  Report Type: 
  Country: None (occurrence: None)
  Receive Date: 20071130
  Receipt Date: 20070727
  Transmission Date: 20080405
  Serious: No
  Sender: FDA-Public Use
  Company Number: US200707003247

PATIENT
  Age: 62 Year
  Sex: Male

DRUGS (12)
  1. BYETTA [Suspect]
     Indication: TYPE 2 DIABETES MELLITUS
     Dosage: 5 UG, 2/D, SUBCUTANEOUS
     Route: 058
     Dates: start: 20070710
  2. HUMALOG MIX /SPA/ (INSULIN LISPRO, INSULIN LISPRO PROTAMINE SUSPENSION [Concomitant]
  3. ACTOS [Concomitant]
  4. INSULIN (INSULIN) [Concomitant]
  5. PLAVIX [Concomitant]
  6. VYTORIN [Concomitant]
  7. COREG [Concomitant]
  8. ASA (ASPIRIN ACETYLSALICYLIC ACID) UNKNOWN FORMULATION) [Concomitant]
  9. LISINOPRIL [Concomitant]
  10. FUROSEMIDE [Concomitant]
  11. POTASSIUM (POTASSIUM) [Concomitant]
  12. TYLENOL W/ CODEINE NO. 3 [Concomitant]

REACTIONS (3)
  - BLOOD GLUCOSE INCREASED [None]
  - DECREASED APPETITE [None]
  - NAUSEA [None]
